FAERS Safety Report 9865404 (Version 3)
Quarter: 2014Q1

REPORT INFORMATION
  Report Type: Report from Study
  Country: ZA (occurrence: ZA)
  Receive Date: 20140203
  Receipt Date: 20140211
  Transmission Date: 20141002
  Serious: Yes (Life-Threatening, Other)
  Sender: FDA-Public Use
  Company Number: PHHY2012ZA001383

PATIENT
  Age: 60 Year
  Sex: Female

DRUGS (6)
  1. ACLASTA [Suspect]
     Indication: OSTEOPOROSIS
     Dosage: 5 MG, PER 100 ML YEARLY
     Route: 042
     Dates: start: 201112
  2. ACLASTA [Suspect]
     Dosage: 5 MG, PER 100 ML YEARLY
     Route: 042
     Dates: start: 201301
  3. ACLASTA [Suspect]
     Dosage: 5 MG, PER 100 ML
     Route: 042
     Dates: start: 20140204
  4. VIT D [Concomitant]
     Dosage: UNK UKN, UNK
  5. CALTRATE [Concomitant]
     Dosage: UNK UKN, UNK
  6. CALCIUM [Concomitant]
     Dosage: UNK UKN, UNK

REACTIONS (10)
  - Feeling abnormal [Unknown]
  - Acidosis [Unknown]
  - Chest pain [Unknown]
  - Pharyngitis [Unknown]
  - Oropharyngeal pain [Unknown]
  - Hyperhidrosis [Unknown]
  - Bone density decreased [Unknown]
  - Asthenia [Unknown]
  - Influenza [Unknown]
  - Bone pain [Unknown]
